FAERS Safety Report 24251108 (Version 2)
Quarter: 2024Q3

REPORT INFORMATION
  Report Type: Spontaneous
  Country: DE (occurrence: None)
  Receive Date: 20240826
  Receipt Date: 20240906
  Transmission Date: 20241016
  Serious: Yes (Other)
  Sender: ASTRAZENECA
  Company Number: 2024A153842

PATIENT
  Age: 66 Year
  Sex: Male
  Weight: 77 kg

DRUGS (5)
  1. BUDESONIDE\FORMOTEROL\GLYCOPYRRONIUM [Suspect]
     Active Substance: BUDESONIDE\FORMOTEROL\GLYCOPYRRONIUM
     Indication: Chronic obstructive pulmonary disease
     Dosage: 5 UG/INHAL TWO TIMES A DAY
     Route: 055
     Dates: start: 2021
  2. AMLODIPINE [Concomitant]
     Active Substance: AMLODIPINE BESYLATE
     Dates: start: 2021
  3. METOPROLOL [Concomitant]
     Active Substance: METOPROLOL
     Dates: start: 2015
  4. RAMIPRIL [Concomitant]
     Active Substance: RAMIPRIL
     Dates: start: 2015
  5. MOXONIDINE [Concomitant]
     Active Substance: MOXONIDINE
     Dates: start: 2021

REACTIONS (4)
  - Chronic obstructive pulmonary disease [Unknown]
  - Bacterial infection [Unknown]
  - Gait inability [Unknown]
  - Device effect decreased [Unknown]

NARRATIVE: CASE EVENT DATE: 20240301
